FAERS Safety Report 8446875-0 (Version None)
Quarter: 2012Q2

REPORT INFORMATION
  Report Type: 
  Country: None (occurrence: None)
  Receive Date: 20120613
  Receipt Date: 20120613
  Transmission Date: 20120825
  Serious: Yes (Other)
  Sender: FDA-Public Use
  Company Number: None

PATIENT
  Age: 54 Year
  Sex: Female
  Weight: 69.4003 kg

DRUGS (2)
  1. QUETIAPINE [Suspect]
  2. QUETIAPINE [Suspect]
     Indication: MAJOR DEPRESSION
     Dates: start: 20120530

REACTIONS (3)
  - INSOMNIA [None]
  - HALLUCINATION, VISUAL [None]
  - PRODUCT SUBSTITUTION ISSUE [None]
